FAERS Safety Report 8254743-2 (Version None)
Quarter: 2012Q2

REPORT INFORMATION
  Report Type: 
  Country: None (occurrence: None)
  Receive Date: 20120403
  Receipt Date: 20120322
  Transmission Date: 20120825
  Serious: Yes (Other)
  Sender: FDA-Public Use
  Company Number: PHHY2012FR014355

PATIENT
  Sex: Female
  Weight: 30 kg

DRUGS (4)
  1. FOLIC ACID [Concomitant]
     Indication: LEUKOERYTHROBLASTIC ANAEMIA
     Dosage: 5 MG, QD
     Route: 048
  2. EXJADE [Suspect]
     Indication: CHELATION THERAPY
     Dosage: 625 MG, DAILY
     Dates: start: 20110701
  3. EXJADE [Suspect]
     Dosage: 750 MG, DAILY
     Dates: start: 20111101
  4. EXJADE [Suspect]
     Indication: IRON OVERLOAD
     Dosage: 500 MG, DAILY
     Route: 048
     Dates: start: 20100510

REACTIONS (6)
  - HEADACHE [None]
  - SERUM FERRITIN INCREASED [None]
  - ASTIGMATISM [None]
  - VISUAL FIELD DEFECT [None]
  - VISUAL ACUITY REDUCED [None]
  - VISUAL IMPAIRMENT [None]
